FAERS Safety Report 8220442-6 (Version None)
Quarter: 2012Q1

REPORT INFORMATION
  Report Type: 
  Country: None (occurrence: None)
  Receive Date: 20120319
  Receipt Date: 20120210
  Transmission Date: 20120608
  Serious: Yes (Other)
  Sender: FDA-Public Use
  Company Number: PHHY2012JP010498

PATIENT
  Age: 4 Month
  Sex: Male

DRUGS (1)
  1. DICLOFENAC SODIUM [Suspect]
     Indication: PROCEDURAL PAIN
     Route: 048

REACTIONS (6)
  - REYE'S SYNDROME [None]
  - ENCEPHALOPATHY [None]
  - ALTERED STATE OF CONSCIOUSNESS [None]
  - TRANSAMINASES INCREASED [None]
  - HEPATIC STEATOSIS [None]
  - CONVULSION [None]
